FAERS Safety Report 7375910-6 (Version None)
Quarter: 2011Q1

REPORT INFORMATION
  Report Type: 
  Country: None (occurrence: None)
  Receive Date: 20110325
  Receipt Date: 20110321
  Transmission Date: 20110831
  Serious: Yes (Hospitalization)
  Sender: FDA-Public Use
  Company Number: B0707076A

PATIENT
  Sex: Female

DRUGS (6)
  1. CALCIDIA [Concomitant]
     Dosage: 1UNIT PER DAY
     Route: 065
  2. DALACINE [Suspect]
     Dosage: 600MG THREE TIMES PER DAY
     Route: 048
     Dates: start: 20101111, end: 20101203
  3. PEVARYL [Concomitant]
     Dosage: 1PCT UNKNOWN
     Route: 065
  4. CALCIPARINE [Concomitant]
     Dosage: .3ML TWICE PER DAY
     Route: 058
  5. CLAMOXYL [Suspect]
     Route: 065
     Dates: start: 20101103, end: 20101214
  6. RIFADIN [Suspect]
     Route: 065
     Dates: start: 20101103, end: 20101214

REACTIONS (6)
  - PRURITUS [None]
  - RASH MACULAR [None]
  - METABOLIC ACIDOSIS [None]
  - DRUG LEVEL ABOVE THERAPEUTIC [None]
  - RENAL FAILURE ACUTE [None]
  - DIARRHOEA [None]
